FAERS Safety Report 15397099 (Version 1)
Quarter: 2018Q3

REPORT INFORMATION
  Report Type: Spontaneous
  Country: US (occurrence: US)
  Receive Date: 20180913
  Receipt Date: 20180913
  Transmission Date: 20181010
  Serious: Yes (Disabling)
  Sender: FDA-Public Use
  Company Number: None

PATIENT
  Age: 32 Year
  Sex: Male
  Weight: 81 kg

DRUGS (8)
  1. ADDERALL [Concomitant]
     Active Substance: AMPHETAMINE ASPARTATE\AMPHETAMINE SULFATE\DEXTROAMPHETAMINE SACCHARATE\DEXTROAMPHETAMINE SULFATE
  2. HCG [Concomitant]
     Active Substance: GONADOTROPHIN, CHORIONIC
  3. ADDYI [Concomitant]
     Active Substance: FLIBANSERIN
  4. TESTOSTERONE REPLACEMENT THERAPY [Concomitant]
  5. CLOMID [Concomitant]
     Active Substance: CLOMIPHENE CITRATE
  6. FINASTERIDE. [Suspect]
     Active Substance: FINASTERIDE
     Indication: ALOPECIA
     Dosage: ?          QUANTITY:1 TABLET(S);?
     Dates: start: 20130801, end: 20140201
  7. CIALIS [Concomitant]
     Active Substance: TADALAFIL
  8. ANASTRAZOLE [Concomitant]
     Active Substance: ANASTROZOLE

REACTIONS (8)
  - Erectile dysfunction [None]
  - Dry skin [None]
  - Loss of libido [None]
  - Anhedonia [None]
  - Arthralgia [None]
  - Feeling abnormal [None]
  - Fatigue [None]
  - Blunted affect [None]

NARRATIVE: CASE EVENT DATE: 20130801
